FAERS Safety Report 21295291 (Version 3)
Quarter: 2023Q2

REPORT INFORMATION
  Report Type: Spontaneous
  Country: CN (occurrence: CN)
  Receive Date: 20220905
  Receipt Date: 20230523
  Transmission Date: 20230722
  Serious: Yes (Death, Other)
  Sender: FDA-Public Use
  Company Number: CN-ABBVIE-22K-035-4529123-00

PATIENT

DRUGS (1)
  1. VENETOCLAX [Suspect]
     Active Substance: VENETOCLAX
     Indication: Acute myeloid leukaemia
     Dosage: VENETOCLAX 100 MG ON D1, 200 MG ON D2, 400 MG ON D3 ONWARDS
     Route: 048

REACTIONS (22)
  - Cerebral haemorrhage [Fatal]
  - Myelosuppression [Unknown]
  - Blood potassium decreased [Recovering/Resolving]
  - Fungal infection [Unknown]
  - Infection [Unknown]
  - Hepatic function abnormal [Recovering/Resolving]
  - Haemorrhage [Recovering/Resolving]
  - Vomiting [Recovering/Resolving]
  - Constipation [Recovering/Resolving]
  - Diarrhoea [Recovering/Resolving]
  - Decreased appetite [Recovering/Resolving]
  - Asthenia [Recovering/Resolving]
  - Dizziness [Recovering/Resolving]
  - Blood calcium decreased [Recovering/Resolving]
  - Drug ineffective [Unknown]
  - Epistaxis [Unknown]
  - Gastrointestinal haemorrhage [Unknown]
  - Anaemia [Recovering/Resolving]
  - Febrile neutropenia [Recovering/Resolving]
  - Nausea [Recovering/Resolving]
  - Thrombocytopenia [Unknown]
  - Pneumonia [Fatal]
